FAERS Safety Report 7298582-8 (Version None)
Quarter: 2011Q1

REPORT INFORMATION
  Report Type: 
  Country: None (occurrence: None)
  Receive Date: 20110217
  Receipt Date: 20110213
  Transmission Date: 20110831
  Serious: Yes (Death)
  Sender: FDA-Public Use
  Company Number: US-JNJFOC-20110205212

PATIENT
  Age: 23 Year
  Sex: Male

DRUGS (5)
  1. XANAX [Interacting]
     Indication: ILL-DEFINED DISORDER
     Route: 065
  2. UNSPECIFIED NARCOTIC [Interacting]
     Indication: ILL-DEFINED DISORDER
     Route: 065
  3. FENTANYL TRANSDERMAL SYSTEM [Suspect]
     Indication: PAIN
     Route: 062
  4. ANTIDEPRESSANTS [Interacting]
     Indication: POST-TRAUMATIC STRESS DISORDER
     Route: 065
  5. HYDROMORPHONE [Interacting]
     Indication: PAIN
     Route: 065

REACTIONS (3)
  - WRONG TECHNIQUE IN DRUG USAGE PROCESS [None]
  - DRUG INTERACTION [None]
  - RESPIRATORY DEPRESSION [None]
